FAERS Safety Report 10177489 (Version 1)
Quarter: 2014Q2

REPORT INFORMATION
  Report Type: Spontaneous
  Country: GB (occurrence: GB)
  Receive Date: 20140516
  Receipt Date: 20140516
  Transmission Date: 20141212
  Serious: Yes (Hospitalization)
  Sender: FDA-Public Use
  Company Number: GB-ASTRAZENECA-2014SE32458

PATIENT
  Age: 49 Year
  Sex: Male

DRUGS (3)
  1. SYMBICORT TURBOHALER [Suspect]
     Indication: ASTHMA
     Dosage: 200/6 MCG, UNKNOWN (1 PUFF OR TWO PUFF, AM AND PM)
     Route: 055
     Dates: start: 201312
  2. SYMBICORT TURBOHALER [Suspect]
     Indication: ASTHMA
     Dosage: UNKNOWN (PROPERLY)
     Route: 055
     Dates: start: 201404, end: 20140509
  3. CETIRIZINE [Concomitant]

REACTIONS (3)
  - Back pain [Not Recovered/Not Resolved]
  - Abnormal sleep-related event [Not Recovered/Not Resolved]
  - Muscle spasms [Not Recovered/Not Resolved]
